FAERS Safety Report 7399293-0 (Version None)
Quarter: 2011Q1

REPORT INFORMATION
  Report Type: 
  Country: None (occurrence: None)
  Receive Date: 20110328
  Receipt Date: 20110317
  Transmission Date: 20110831
  Serious: Yes (Hospitalization)
  Sender: FDA-Public Use
  Company Number: BR-001609

PATIENT
  Sex: Female

DRUGS (1)
  1. NAGLAZYME [Suspect]
     Indication: MUCOPOLYSACCHARIDOSIS VI
     Dosage: INTRAVENOUS DRIP
     Route: 041

REACTIONS (6)
  - PALLOR [None]
  - INFUSION RELATED REACTION [None]
  - NEUTROPHILIA [None]
  - HYPERHIDROSIS [None]
  - RESPIRATORY DISTRESS [None]
  - PNEUMONIA [None]
